FAERS Safety Report 23643492 (Version 4)
Quarter: 2024Q2

REPORT INFORMATION
  Report Type: Spontaneous
  Country: JP (occurrence: JP)
  Receive Date: 20240318
  Receipt Date: 20240503
  Transmission Date: 20240715
  Serious: Yes (Hospitalization, Other)
  Sender: FDA-Public Use
  Company Number: JP-MYOVANT SCIENCES GMBH-2024MYSCI0300321

PATIENT
  Age: 48 Year
  Sex: Female

DRUGS (1)
  1. RELUGOLIX [Suspect]
     Active Substance: RELUGOLIX
     Indication: Endometriosis
     Dosage: 40 MILLIGRAM, QD
     Route: 048
     Dates: start: 202305, end: 202305

REACTIONS (1)
  - Intestinal obstruction [Recovered/Resolved]

NARRATIVE: CASE EVENT DATE: 20230501
